FAERS Safety Report 4756917-1 (Version None)
Quarter: 2005Q3

REPORT INFORMATION
  Report Type: 
  Country: None (occurrence: None)
  Receive Date: 20050830
  Receipt Date: 20050816
  Transmission Date: 20060218
  Serious: Yes (Other)
  Sender: FDA-Public Use
  Company Number: US-KINGPHARMUSA00001-K200501099

PATIENT
  Age: 50 Year
  Sex: Female
  Weight: 70 kg

DRUGS (5)
  1. SKELAXIN [Suspect]
     Indication: NECK INJURY
     Dosage: 800 MG, QID
     Route: 048
     Dates: start: 20050808, end: 20050809
  2. RELAFEN [Suspect]
     Indication: NECK INJURY
     Dates: start: 20050808, end: 20050809
  3. SYNTHROID [Concomitant]
     Indication: HYPOTHYROIDISM
  4. LEXAPRO [Concomitant]
     Indication: DEPRESSION
     Dates: start: 20040601
  5. ADDERALL 30 [Concomitant]
     Dates: start: 20030101

REACTIONS (4)
  - ASTHENIA [None]
  - BLOOD CREATINE PHOSPHOKINASE INCREASED [None]
  - MYALGIA [None]
  - RHABDOMYOLYSIS [None]
